FAERS Safety Report 18853093 (Version 7)
Quarter: 2022Q2

REPORT INFORMATION
  Report Type: Report from Study
  Country: CO (occurrence: CO)
  Receive Date: 20210205
  Receipt Date: 20220409
  Transmission Date: 20220721
  Serious: Yes (Hospitalization, Other)
  Sender: FDA-Public Use
  Company Number: CO-ABBVIE-21K-036-3761362-00

PATIENT
  Sex: Male
  Weight: 75 kg

DRUGS (5)
  1. HUMIRA [Suspect]
     Active Substance: ADALIMUMAB
     Indication: Psoriatic arthropathy
     Route: 058
     Dates: start: 20170808
  2. HUMIRA [Suspect]
     Active Substance: ADALIMUMAB
     Indication: Psoriatic arthropathy
     Route: 058
     Dates: end: 20210601
  3. HUMIRA [Suspect]
     Active Substance: ADALIMUMAB
     Route: 058
     Dates: start: 2021, end: 20210706
  4. HUMIRA [Suspect]
     Active Substance: ADALIMUMAB
     Route: 058
     Dates: end: 20220303
  5. INSULIN NOS [Concomitant]
     Active Substance: INSULIN NOS
     Indication: Diabetes mellitus

REACTIONS (16)
  - Renal injury [Recovering/Resolving]
  - Malaise [Unknown]
  - Post procedural complication [Not Recovered/Not Resolved]
  - Spinal disorder [Not Recovered/Not Resolved]
  - Deafness [Not Recovered/Not Resolved]
  - Spinal decompression [Not Recovered/Not Resolved]
  - Spinal pain [Not Recovered/Not Resolved]
  - Gait inability [Not Recovered/Not Resolved]
  - Procedural pain [Unknown]
  - Malaise [Recovering/Resolving]
  - Gait disturbance [Not Recovered/Not Resolved]
  - Nail disorder [Not Recovered/Not Resolved]
  - Arthropathy [Not Recovered/Not Resolved]
  - Drug ineffective [Not Recovered/Not Resolved]
  - Arthralgia [Not Recovered/Not Resolved]
  - Hypertension [Recovering/Resolving]

NARRATIVE: CASE EVENT DATE: 20180101
